FAERS Safety Report 14282146 (Version 5)
Quarter: 2018Q1

REPORT INFORMATION
  Report Type: Report from Study
  Country: DE (occurrence: DE)
  Receive Date: 20171213
  Receipt Date: 20180127
  Transmission Date: 20180508
  Serious: Yes (Hospitalization)
  Sender: FDA-Public Use
  Company Number: DE-AMGEN-DEUCT2017184591

PATIENT
  Age: 12 Year
  Sex: Female
  Weight: 30.9 kg

DRUGS (4)
  1. DENOSUMAB [Suspect]
     Active Substance: DENOSUMAB
     Indication: OSTEOGENESIS IMPERFECTA
     Dosage: 0.45 ML, Q6MO
     Route: 058
     Dates: start: 20170926
  2. IBUPROFEN. [Concomitant]
     Active Substance: IBUPROFEN
     Dosage: 300 MG, TID
     Route: 048
     Dates: start: 20170928, end: 20171203
  3. VIGANTOLETTEN [Concomitant]
     Active Substance: CHOLECALCIFEROL
     Dosage: 1000 IU, UNK
     Route: 048
     Dates: start: 20170926
  4. CALCIUM [Concomitant]
     Active Substance: CALCIUM
     Dosage: 1000 MG, UNK
     Route: 048
     Dates: start: 20170926, end: 20171127

REACTIONS (1)
  - Pain [Recovered/Resolved]

NARRATIVE: CASE EVENT DATE: 20171201
